FAERS Safety Report 24978204 (Version 5)
Quarter: 2025Q4

REPORT INFORMATION
  Report Type: Spontaneous
  Country: JP (occurrence: JP)
  Receive Date: 20250217
  Receipt Date: 20251015
  Transmission Date: 20260117
  Serious: Yes (Life-Threatening, Hospitalization, Other)
  Sender: PFIZER
  Company Number: JP-ASTELLAS-2024-AER-020722

PATIENT
  Age: 70 Year
  Sex: Male
  Weight: 50 kg

DRUGS (17)
  1. PADCEV [Suspect]
     Active Substance: ENFORTUMAB VEDOTIN-EJFV
     Indication: Bladder cancer
     Dosage: 78 MG (100% DOSE)
     Route: 042
     Dates: start: 20241106
  2. PADCEV [Suspect]
     Active Substance: ENFORTUMAB VEDOTIN-EJFV
     Dosage: 75 MG
     Route: 042
     Dates: start: 20241113, end: 20241113
  3. METRONIDAZOLE [Suspect]
     Active Substance: METRONIDAZOLE
     Indication: Febrile neutropenia
     Dosage: UNK
     Route: 065
     Dates: start: 20241129, end: 20241130
  4. LEVOFLOXACIN [Suspect]
     Active Substance: LEVOFLOXACIN
     Indication: Febrile neutropenia
     Dosage: UNK
     Route: 065
     Dates: start: 20241130, end: 20241202
  5. KEYTRUDA [Suspect]
     Active Substance: PEMBROLIZUMAB
     Indication: Bladder cancer
     Dosage: UNK
     Route: 042
     Dates: start: 20241106
  6. VANCOMYCIN [Suspect]
     Active Substance: VANCOMYCIN
     Indication: Febrile neutropenia
     Dosage: UNK
     Route: 065
     Dates: start: 20241127
  7. VANCOMYCIN [Suspect]
     Active Substance: VANCOMYCIN
     Dosage: UNK
     Dates: start: 20241209
  8. KEFLEX [Suspect]
     Active Substance: CEPHALEXIN
     Dosage: UNK
     Route: 048
  9. MEROPENEM [Suspect]
     Active Substance: MEROPENEM
     Indication: Febrile neutropenia
     Dosage: UNK
     Route: 065
     Dates: start: 20241122
  10. MICAFUNGIN [Suspect]
     Active Substance: MICAFUNGIN SODIUM
     Indication: Febrile neutropenia
     Dosage: UNK
     Route: 065
     Dates: start: 20241127
  11. FILGRASTIM [Concomitant]
     Active Substance: FILGRASTIM
     Indication: Febrile neutropenia
     Dosage: UNK
     Route: 065
     Dates: start: 20241122
  12. FILGRASTIM [Concomitant]
     Active Substance: FILGRASTIM
     Dosage: UNK
     Dates: start: 20241123
  13. FILGRASTIM [Concomitant]
     Active Substance: FILGRASTIM
     Dosage: UNK
     Dates: start: 20241125
  14. FILGRASTIM [Concomitant]
     Active Substance: FILGRASTIM
     Dosage: UNK
     Dates: start: 20241127
  15. TAMSULOSIN HYDROCHLORIDE [Concomitant]
     Active Substance: TAMSULOSIN HYDROCHLORIDE
     Dosage: UNK
     Route: 048
  16. VIBEGRON [Concomitant]
     Active Substance: VIBEGRON
     Dosage: UNK
     Route: 048
  17. CALCIUM CHLORIDE\MAGNESIUM CHLORIDE\POTASSIUM CHLORIDE\SODIUM ACETATE\ [Concomitant]
     Active Substance: CALCIUM CHLORIDE\MAGNESIUM CHLORIDE\POTASSIUM CHLORIDE\SODIUM ACETATE\SODIUM CHLORIDE
     Dosage: UNK
     Route: 042

REACTIONS (6)
  - Febrile neutropenia [Recovered/Resolved]
  - Epilepsy [Recovered/Resolved]
  - Altered state of consciousness [Recovered/Resolved]
  - Hyperglycaemia [Unknown]
  - Urinary tract infection [Unknown]
  - Overdose [Unknown]

NARRATIVE: CASE EVENT DATE: 20241106
